FAERS Safety Report 4544959-0 (Version None)
Quarter: 2005Q1

REPORT INFORMATION
  Report Type: 
  Country: None (occurrence: None)
  Receive Date: 20050104
  Receipt Date: 20041220
  Transmission Date: 20050727
  Serious: Yes (Other)
  Sender: FDA-Public Use
  Company Number: 2004-12-1088

PATIENT
  Sex: Male

DRUGS (2)
  1. TEMODAR [Suspect]
     Dosage: ORAL
     Route: 048
     Dates: end: 20041217
  2. TRILEPTAL [Suspect]

REACTIONS (3)
  - DRUG INTERACTION [None]
  - FACIAL PALSY [None]
  - NEOPLASM [None]
